FAERS Safety Report 10197306 (Version 1)
Quarter: 2014Q2

REPORT INFORMATION
  Report Type: Spontaneous
  Country: US (occurrence: None)
  Receive Date: 20140523
  Receipt Date: 20140523
  Transmission Date: 20141212
  Serious: Yes (Disabling)
  Sender: FDA-Public Use
  Company Number: None

PATIENT
  Age: 67 Year
  Sex: Male
  Weight: 122.47 kg

DRUGS (4)
  1. DULOXETINE [Suspect]
     Indication: DEPRESSION
     Dosage: 1 PILL
     Route: 048
     Dates: start: 20140414, end: 20140430
  2. CYMBALTA [Concomitant]
  3. DEXILANT [Concomitant]
  4. CENTRUM MULTIVITAMINS [Concomitant]

REACTIONS (5)
  - Drug ineffective [None]
  - Constipation [None]
  - Dry mouth [None]
  - Product substitution issue [None]
  - Depression [None]
